FAERS Safety Report 20563051 (Version 1)
Quarter: 2022Q1

REPORT INFORMATION
  Report Type: Spontaneous
  Country: GB (occurrence: GB)
  Receive Date: 20220307
  Receipt Date: 20220307
  Transmission Date: 20220424
  Serious: Yes (Congenital Anomaly, Other)
  Sender: FDA-Public Use
  Company Number: GB-ABBVIE-22K-167-4300924-00

PATIENT

DRUGS (2)
  1. VALPROATE SODIUM [Suspect]
     Active Substance: VALPROATE SODIUM
     Indication: Maternal exposure timing unspecified
     Route: 064
  2. LAMOTRIGINE [Suspect]
     Active Substance: LAMOTRIGINE
     Indication: Maternal exposure timing unspecified
     Route: 064

REACTIONS (8)
  - Speech disorder developmental [Unknown]
  - Supraventricular tachycardia [Unknown]
  - Obsessive-compulsive disorder [Unknown]
  - Inguinal hernia [Unknown]
  - Atrial septal defect [Unknown]
  - Foetal anticonvulsant syndrome [Unknown]
  - Seizure [Unknown]
  - Foetal exposure during pregnancy [Unknown]
